FAERS Safety Report 9605546 (Version 1)
Quarter: 2013Q4

REPORT INFORMATION
  Report Type: Spontaneous
  Country: US (occurrence: US)
  Receive Date: 20131008
  Receipt Date: 20131008
  Transmission Date: 20140711
  Serious: No
  Sender: FDA-Public Use
  Company Number: US-PFIZER INC-2013286665

PATIENT
  Age: 60 Year
  Sex: Female
  Weight: 63.49 kg

DRUGS (3)
  1. LYRICA [Suspect]
     Indication: FIBROMYALGIA
     Dosage: 75 MG, 2X/DAY
     Route: 048
     Dates: start: 201306, end: 2013
  2. LYRICA [Suspect]
     Dosage: 225 MG, 3X/DAY
     Route: 048
     Dates: start: 2013
  3. LORTAB [Concomitant]
     Indication: PAIN
     Dosage: UNK, AS NEEDED

REACTIONS (2)
  - Intentional drug misuse [Unknown]
  - Herpes zoster [Not Recovered/Not Resolved]
